FAERS Safety Report 17037780 (Version 3)
Quarter: 2020Q2

REPORT INFORMATION
  Report Type: Spontaneous
  Country: CA (occurrence: CA)
  Receive Date: 20191115
  Receipt Date: 20200619
  Transmission Date: 20200713
  Serious: Yes (Life-Threatening, Hospitalization)
  Sender: FDA-Public Use
  Company Number: CA-ROCHE-2461506

PATIENT
  Sex: Female

DRUGS (25)
  1. ACTEMRA [Suspect]
     Active Substance: TOCILIZUMAB
     Indication: STILL^S DISEASE
     Route: 042
  2. ACTEMRA [Suspect]
     Active Substance: TOCILIZUMAB
     Indication: JUVENILE IDIOPATHIC ARTHRITIS
     Dosage: 5.0 MONTH(S)
     Route: 042
  3. HYDROXYCHLOROQUINE [Suspect]
     Active Substance: HYDROXYCHLOROQUINE
     Indication: JUVENILE IDIOPATHIC ARTHRITIS
     Route: 048
  4. METHOTREXATE SODIUM. [Suspect]
     Active Substance: METHOTREXATE SODIUM
     Indication: JUVENILE IDIOPATHIC ARTHRITIS
     Route: 065
  5. ANAKINRA [Suspect]
     Active Substance: ANAKINRA
     Indication: RHEUMATOID ARTHRITIS
     Route: 058
  6. ANAKINRA [Suspect]
     Active Substance: ANAKINRA
     Indication: JUVENILE IDIOPATHIC ARTHRITIS
     Route: 065
  7. FOLIC ACID. [Concomitant]
     Active Substance: FOLIC ACID
  8. TRIAMCINOLONE [Suspect]
     Active Substance: TRIAMCINOLONE
     Indication: RHEUMATOID ARTHRITIS
     Route: 014
  9. KINERET [Suspect]
     Active Substance: ANAKINRA
     Indication: RHEUMATOID ARTHRITIS
     Dosage: 1.0 YEAR(S)
     Route: 058
  10. METHOTREXATE. [Suspect]
     Active Substance: METHOTREXATE
     Route: 065
  11. ORENCIA [Suspect]
     Active Substance: ABATACEPT
     Indication: RHEUMATOID ARTHRITIS
     Dosage: 2.0 MONTH(S)
     Route: 042
  12. ACTEMRA [Suspect]
     Active Substance: TOCILIZUMAB
     Indication: JUVENILE IDIOPATHIC ARTHRITIS
  13. TRIAMCINOLONE [Suspect]
     Active Substance: TRIAMCINOLONE
     Indication: JUVENILE IDIOPATHIC ARTHRITIS
  14. HUMIRA [Suspect]
     Active Substance: ADALIMUMAB
     Route: 065
  15. INFLIXIMAB [Suspect]
     Active Substance: INFLIXIMAB
     Indication: JUVENILE IDIOPATHIC ARTHRITIS
     Dosage: 4.0 MONTH(S)
     Route: 042
  16. METHOTREXATE. [Suspect]
     Active Substance: METHOTREXATE
     Indication: JUVENILE IDIOPATHIC ARTHRITIS
     Route: 058
  17. APO-NAPROXEN [Suspect]
     Active Substance: NAPROXEN
     Indication: JUVENILE IDIOPATHIC ARTHRITIS
     Route: 065
  18. KINERET [Suspect]
     Active Substance: ANAKINRA
     Indication: JUVENILE IDIOPATHIC ARTHRITIS
  19. ORENCIA [Suspect]
     Active Substance: ABATACEPT
     Indication: JUVENILE IDIOPATHIC ARTHRITIS
     Route: 065
  20. APO-PREDNISONE [Suspect]
     Active Substance: PREDNISONE
     Indication: JUVENILE IDIOPATHIC ARTHRITIS
     Route: 048
  21. ENBREL [Suspect]
     Active Substance: ETANERCEPT
     Indication: JUVENILE IDIOPATHIC ARTHRITIS
     Dosage: 7.0 MONTH(S)
     Route: 058
  22. HUMIRA [Suspect]
     Active Substance: ADALIMUMAB
     Indication: JUVENILE IDIOPATHIC ARTHRITIS
     Dosage: 2.0 MONTH(S)
     Route: 058
  23. HYDROXYCHLOROQUINE SULFATE. [Suspect]
     Active Substance: HYDROXYCHLOROQUINE SULFATE
     Indication: JUVENILE IDIOPATHIC ARTHRITIS
     Route: 048
  24. SULFASALAZINE. [Suspect]
     Active Substance: SULFASALAZINE
     Indication: JUVENILE IDIOPATHIC ARTHRITIS
     Route: 048
  25. ACTEMRA [Suspect]
     Active Substance: TOCILIZUMAB
     Indication: STILL^S DISEASE
     Route: 065

REACTIONS (29)
  - C-reactive protein increased [Unknown]
  - Off label use [Unknown]
  - Quality of life decreased [Unknown]
  - Product use in unapproved indication [Unknown]
  - Intentional product use issue [Unknown]
  - Adrenal insufficiency [Unknown]
  - Juvenile idiopathic arthritis [Unknown]
  - Nausea [Unknown]
  - Wheelchair user [Unknown]
  - Drug intolerance [Unknown]
  - Prescribed underdose [Unknown]
  - Bone density decreased [Unknown]
  - Condition aggravated [Unknown]
  - Dizziness [Unknown]
  - Therapy non-responder [Unknown]
  - Antibody test positive [Unknown]
  - Arthralgia [Unknown]
  - Body height below normal [Unknown]
  - Psoriasis [Unknown]
  - Septic shock [Unknown]
  - Synovitis [Unknown]
  - Vomiting [Unknown]
  - Contraindicated product administered [Unknown]
  - Arthritis [Unknown]
  - Diarrhoea [Unknown]
  - Drug ineffective [Unknown]
  - Mobility decreased [Unknown]
  - Red blood cell sedimentation rate increased [Unknown]
  - Obesity [Unknown]
